FAERS Safety Report 19326067 (Version 2)
Quarter: 2021Q2

REPORT INFORMATION
  Report Type: Spontaneous
  Country: BR (occurrence: BR)
  Receive Date: 20210528
  Receipt Date: 20210614
  Transmission Date: 20210717
  Serious: Yes (Hospitalization)
  Sender: FDA-Public Use
  Company Number: BR-ELI_LILLY_AND_COMPANY-BR202105008400

PATIENT
  Sex: Female

DRUGS (3)
  1. ASTRAZENECA COVID?19 VACCINE [Concomitant]
     Active Substance: AZD-1222
     Indication: COVID-19 IMMUNISATION
     Dosage: UNK, UNKNOWN
     Dates: start: 20210430
  2. OLUMIANT [Suspect]
     Active Substance: BARICITINIB
     Indication: ARTHRITIS
     Dosage: UNK, UNKNOWN
     Route: 065
     Dates: start: 2019, end: 202105
  3. OLUMIANT [Suspect]
     Active Substance: BARICITINIB
     Dosage: UNK, DAILY
     Route: 065
     Dates: start: 20210530

REACTIONS (1)
  - COVID-19 [Recovering/Resolving]
